FAERS Safety Report 9661373 (Version 2)
Quarter: 2013Q4

REPORT INFORMATION
  Report Type: Spontaneous
  Country: PT (occurrence: PT)
  Receive Date: 20131031
  Receipt Date: 20131120
  Transmission Date: 20140711
  Serious: Yes (Other)
  Sender: FDA-Public Use
  Company Number: PT-009507513-1310PRT013262

PATIENT
  Age: 52 Year
  Sex: Male

DRUGS (5)
  1. REBETOL [Suspect]
     Indication: HEPATITIS C
     Route: 048
  2. VICTRELIS [Interacting]
     Indication: HEPATITIS C
     Route: 048
  3. PEGASYS [Suspect]
     Indication: HEPATITIS C
  4. VENLAFAXINE HYDROCHLORIDE [Interacting]
     Indication: DEPRESSION
  5. NORFLOXACIN [Concomitant]
     Indication: PROPHYLAXIS

REACTIONS (2)
  - Neutropenia [Recovered/Resolved]
  - Drug interaction [Recovered/Resolved]
